FAERS Safety Report 7803338-0 (Version None)
Quarter: 2011Q4

REPORT INFORMATION
  Report Type: 
  Country: None (occurrence: None)
  Receive Date: 20111007
  Receipt Date: 20110930
  Transmission Date: 20120403
  Serious: Yes (Other)
  Sender: FDA-Public Use
  Company Number: US-ABBOTT-11P-163-0860691-00

PATIENT
  Age: 45 Year
  Sex: Female

DRUGS (13)
  1. SUDAFED 12 HOUR [Concomitant]
     Indication: HYPERSENSITIVITY
     Dosage: DAILY
  2. SUPPLEMENTS [Concomitant]
     Indication: PRODUCT USED FOR UNKNOWN INDICATION
     Dosage: DAILY
  3. PREDNISONE [Suspect]
  4. PREDNISONE [Suspect]
  5. FLEXERIL [Concomitant]
     Indication: PRODUCT USED FOR UNKNOWN INDICATION
     Dosage: ONCE DAILY, BEFORE BED
  6. ULTRAM ER [Concomitant]
     Indication: PAIN
  7. MULTI-VITAMINS [Concomitant]
     Indication: PRODUCT USED FOR UNKNOWN INDICATION
     Dosage: DAILY
  8. HUMIRA [Suspect]
     Indication: RHEUMATOID ARTHRITIS
     Dates: start: 20110420
  9. MACROBID [Suspect]
     Indication: URINARY TRACT INFECTION
  10. GELNIQUE [Suspect]
     Indication: URINARY TRACT INFECTION
  11. EXCEDRINE MIGRAINES [Concomitant]
     Indication: MIGRAINE
  12. DEXILANT [Concomitant]
     Indication: GASTROOESOPHAGEAL REFLUX DISEASE
  13. PREDNISONE [Suspect]
     Indication: PRODUCT USED FOR UNKNOWN INDICATION
     Route: 042
     Dates: start: 20110927

REACTIONS (7)
  - URTICARIA [None]
  - IRRITABILITY [None]
  - URINARY TRACT INFECTION [None]
  - DYSPNOEA [None]
  - CHEST DISCOMFORT [None]
  - POLLAKIURIA [None]
  - PRURITUS [None]
